FAERS Safety Report 10464244 (Version 3)
Quarter: 2014Q4

REPORT INFORMATION
  Report Type: Report from Study
  Country: ES (occurrence: ES)
  Receive Date: 20140919
  Receipt Date: 20141231
  Transmission Date: 20150528
  Serious: Yes (Hospitalization)
  Sender: FDA-Public Use
  Company Number: ES-BAYER-2014-138179

PATIENT
  Age: 60 Year
  Sex: Male
  Weight: 62 kg

DRUGS (10)
  1. IRBESARTAN. [Concomitant]
     Active Substance: IRBESARTAN
     Indication: HYPERTENSION
     Dosage: DAILY DOSE 150 MG
     Route: 048
     Dates: start: 1993
  2. ACENOL [NICOMOL] [Concomitant]
     Indication: ABDOMINAL PAIN UPPER
     Dosage: DAILY DOSE 3 G
     Route: 048
     Dates: start: 20130904
  3. TRAMADOL [Concomitant]
     Active Substance: TRAMADOL
     Indication: BACK PAIN
     Dosage: DAILY DOSE 150 MG
     Route: 048
     Dates: start: 20130904
  4. INDAPAMIDE. [Concomitant]
     Active Substance: INDAPAMIDE
     Indication: HYPERTENSION
     Dosage: DAILY DOSE 2.5 MG
     Route: 048
     Dates: start: 1993
  5. REGORAFENIB [Suspect]
     Active Substance: REGORAFENIB
     Indication: HEPATOCELLULAR CARCINOMA
     Dosage: 80 MG, QD
     Route: 048
     Dates: start: 20141002
  6. INSULIN RAPID [INSULIN] [Concomitant]
     Indication: DIABETES MELLITUS
     Dosage: UNK UNK, PRN
     Route: 030
     Dates: start: 1993
  7. INSULIN MIX [Concomitant]
     Indication: DIABETES MELLITUS
     Dosage: UNK UNK, PRN
     Route: 030
     Dates: start: 1993
  8. REGORAFENIB [Suspect]
     Active Substance: REGORAFENIB
     Indication: HEPATOCELLULAR CARCINOMA
     Dosage: 160 MG, QD; 3 WEEKS ON, 1 WEEK OFF
     Route: 048
     Dates: start: 20131017, end: 20140907
  9. NIMODIPINE. [Concomitant]
     Active Substance: NIMODIPINE
     Indication: HYPERTENSION
     Dosage: DAILY DOSE 30 MG
     Route: 048
     Dates: start: 1993
  10. OMEPRAZOL [Concomitant]
     Active Substance: OMEPRAZOLE
     Indication: PROPHYLAXIS
     Dosage: DAILY DOSE 20 MG
     Route: 048
     Dates: start: 1993

REACTIONS (1)
  - Dehydration [Recovered/Resolved]

NARRATIVE: CASE EVENT DATE: 20140909
